FAERS Safety Report 10674328 (Version 3)
Quarter: 2015Q2

REPORT INFORMATION
  Report Type: Report from Study
  Country: AU (occurrence: None)
  Receive Date: 20141222
  Receipt Date: 20150619
  Transmission Date: 20150821
  Serious: Yes (Other)
  Sender: FDA-Public Use
  Company Number: 2014-20947

PATIENT
  Sex: Female

DRUGS (2)
  1. BETADINE [Suspect]
     Active Substance: POVIDONE-IODINE
     Indication: PRODUCT USED FOR UNKNOWN INDICATION
  2. EYLEA [Suspect]
     Active Substance: AFLIBERCEPT
     Indication: NEOVASCULAR AGE-RELATED MACULAR DEGENERATION
     Dosage: Q4WK, INTRAOCULAR
     Route: 031
     Dates: start: 20130729

REACTIONS (8)
  - Visual impairment [None]
  - Retinal haemorrhage [None]
  - Arthritis [None]
  - Ocular hyperaemia [None]
  - Off label use [None]
  - Visual field defect [None]
  - Inappropriate schedule of drug administration [None]
  - Spondylitis [None]

NARRATIVE: CASE EVENT DATE: 2013
